FAERS Safety Report 20033005 (Version 5)
Quarter: 2022Q1

REPORT INFORMATION
  Report Type: Spontaneous
  Country: CA (occurrence: CA)
  Receive Date: 20211104
  Receipt Date: 20220217
  Transmission Date: 20220424
  Serious: No
  Sender: FDA-Public Use
  Company Number: CA-CELLTRION INC.-2021CA014790

PATIENT

DRUGS (4)
  1. INFLECTRA [Suspect]
     Active Substance: INFLIXIMAB-DYYB
     Indication: Colitis ulcerative
     Dosage: 720 MG (10MG/KG), Q 0, 2, 6, THEN EVERY 8 WEEKS (HOSPITAL START)
     Route: 042
     Dates: start: 20211022
  2. INFLECTRA [Suspect]
     Active Substance: INFLIXIMAB-DYYB
     Dosage: 720 MG (10MG/KG), Q 0, 2, 6, THEN EVERY 8 WEEKS
     Route: 042
     Dates: start: 20211027
  3. INFLECTRA [Suspect]
     Active Substance: INFLIXIMAB-DYYB
     Dosage: 720 MG (10MG/KG), Q 0, 2, 6, THEN EVERY 8 WEEKS
     Route: 042
     Dates: start: 20211123
  4. INFLECTRA [Suspect]
     Active Substance: INFLIXIMAB-DYYB
     Dosage: 720 MG (10MG/KG), Q 0, 2, 6, THEN EVERY 8 WEEKS
     Route: 042
     Dates: start: 20220120

REACTIONS (5)
  - Therapy partial responder [Unknown]
  - Haemorrhoids [Unknown]
  - Condition aggravated [Unknown]
  - Off label use [Unknown]
  - Off label use [Unknown]

NARRATIVE: CASE EVENT DATE: 20211001
